FAERS Safety Report 9371766 (Version 1)
Quarter: 2013Q2

REPORT INFORMATION
  Report Type: Spontaneous
  Country: US (occurrence: None)
  Receive Date: 20130625
  Receipt Date: 20130625
  Transmission Date: 20140414
  Serious: Yes (Hospitalization)
  Sender: FDA-Public Use
  Company Number: CLON20130011

PATIENT
  Age: 26 Year
  Sex: Male

DRUGS (4)
  1. CLONIDINE HCL [Suspect]
     Indication: DRUG DETOXIFICATION
     Route: 048
  2. PROPOFOL [Suspect]
     Indication: DRUG DETOXIFICATION
  3. NITROUS OXIDE [Suspect]
     Indication: DRUG DETOXIFICATION
  4. NALOXONE [Suspect]
     Indication: DRUG DETOXIFICATION

REACTIONS (3)
  - Cardiac arrest [None]
  - Necrotising fasciitis [None]
  - Pulseless electrical activity [None]
